FAERS Safety Report 18610669 (Version 1)
Quarter: 2020Q4

REPORT INFORMATION
  Report Type: Spontaneous
  Country: US (occurrence: US)
  Receive Date: 20201214
  Receipt Date: 20201214
  Transmission Date: 20210114
  Serious: Yes (Other)
  Sender: FDA-Public Use
  Company Number: US-MYLANLABS-2020M1100476

PATIENT
  Sex: Female
  Weight: 66 kg

DRUGS (2)
  1. FENTANYL TRANSDERMAL SYSTEM [Suspect]
     Active Substance: FENTANYL
     Indication: ANKYLOSING SPONDYLITIS
  2. FENTANYL TRANSDERMAL SYSTEM [Suspect]
     Active Substance: FENTANYL
     Indication: NERVE INJURY
     Dosage: 200 MICROGRAM, QOD (TWO PATCHES EVERY TWO DAYS)
     Route: 062

REACTIONS (4)
  - Drug intolerance [Recovering/Resolving]
  - Off label use [Not Recovered/Not Resolved]
  - Drug ineffective [Recovering/Resolving]
  - Product adhesion issue [Recovered/Resolved]
